FAERS Safety Report 24351427 (Version 1)
Quarter: 2024Q3

REPORT INFORMATION
  Report Type: Report from Study
  Country: US (occurrence: US)
  Receive Date: 20240923
  Receipt Date: 20240923
  Transmission Date: 20241017
  Serious: No
  Sender: ROCHE
  Company Number: US-ROCHE-2928822

PATIENT
  Age: 73 Year
  Sex: Female

DRUGS (1)
  1. HERCEPTIN [Suspect]
     Active Substance: TRASTUZUMAB
     Indication: Endometrial cancer
     Dosage: DATE OF SERVICE 12/JAN/2021, 28/APR/2021, 19/MAY/2021, 09/JUN/2021, 30/JUN/2021, 21/JUL/2021, 11/AUG
     Route: 041

REACTIONS (2)
  - Off label use [Unknown]
  - No adverse event [Unknown]
